FAERS Safety Report 23937884 (Version 1)
Quarter: 2024Q2

REPORT INFORMATION
  Report Type: Spontaneous
  Country: US (occurrence: US)
  Receive Date: 20240604
  Receipt Date: 20240604
  Transmission Date: 20240716
  Serious: No
  Sender: FDA-Public Use
  Company Number: US-HALEON-2168940

PATIENT

DRUGS (1)
  1. FLONASE SENSIMIST ALLERGY RELIEF [Suspect]
     Active Substance: FLUTICASONE FUROATE
     Indication: Product used for unknown indication
     Dosage: EXPDATE:20250430EXPDATE:20250430
     Route: 065

REACTIONS (3)
  - Drug ineffective [Unknown]
  - Product complaint [Unknown]
  - Poor quality device used [Unknown]
